FAERS Safety Report 5231791-8 (Version None)
Quarter: 2007Q1

REPORT INFORMATION
  Report Type: 
  Country: None (occurrence: None)
  Receive Date: 20070206
  Receipt Date: 20070126
  Transmission Date: 20070707
  Serious: Yes (Other)
  Sender: FDA-Public Use
  Company Number: US-PFIZER INC-2007008231

PATIENT
  Sex: Female
  Weight: 76.7 kg

DRUGS (4)
  1. NEURONTIN [Suspect]
     Indication: NERVE INJURY
     Dates: start: 20040101, end: 20060901
  2. NEURONTIN [Suspect]
     Indication: PARAESTHESIA
  3. XANAX [Concomitant]
     Indication: ANXIETY
  4. XANAX [Concomitant]
     Indication: SLEEP DISORDER

REACTIONS (1)
  - SURGERY [None]
